FAERS Safety Report 13461109 (Version 1)
Quarter: 2017Q2

REPORT INFORMATION
  Report Type: Spontaneous
  Country: US (occurrence: US)
  Receive Date: 20170419
  Receipt Date: 20170419
  Transmission Date: 20170830
  Serious: Yes (Hospitalization, Other)
  Sender: FDA-Public Use
  Company Number: None

PATIENT
  Age: 24 Year
  Sex: Male
  Weight: 79 kg

DRUGS (1)
  1. LEMTRADA [Suspect]
     Active Substance: ALEMTUZUMAB
     Indication: MULTIPLE SCLEROSIS
     Dosage: OVER 4 HOURS
     Route: 042
     Dates: start: 20170418, end: 20170418

REACTIONS (5)
  - Tremor [None]
  - Depressed level of consciousness [None]
  - Heart rate increased [None]
  - Dysarthria [None]
  - Chills [None]

NARRATIVE: CASE EVENT DATE: 20170418
